FAERS Safety Report 8096621-8 (Version None)
Quarter: 2012Q1

REPORT INFORMATION
  Report Type: 
  Country: None (occurrence: None)
  Receive Date: 20120129
  Receipt Date: 20111130
  Transmission Date: 20120608
  Serious: No
  Sender: FDA-Public Use
  Company Number: US-ABBOTT-11P-163-0879996-00

PATIENT
  Sex: Female

DRUGS (3)
  1. GABAPENTIN [Concomitant]
     Indication: INSOMNIA
  2. HUMIRA [Suspect]
     Dosage: DAY 15
     Route: 058
  3. HUMIRA [Suspect]
     Indication: CROHN'S DISEASE
     Dosage: DAY 1
     Route: 058
     Dates: start: 20111101, end: 20111101

REACTIONS (2)
  - INJECTION SITE PAIN [None]
  - INSOMNIA [None]
